FAERS Safety Report 17428425 (Version 1)
Quarter: 2020Q1

REPORT INFORMATION
  Report Type: Spontaneous
  Country: US (occurrence: US)
  Receive Date: 20200218
  Receipt Date: 20200218
  Transmission Date: 20200409
  Serious: No
  Sender: FDA-Public Use
  Company Number: US-IGSA-SR10009870

PATIENT
  Sex: Male

DRUGS (1)
  1. GAMUNEX-C [Suspect]
     Active Substance: HUMAN IMMUNOGLOBULIN G
     Indication: HYPOGAMMAGLOBULINAEMIA
     Dosage: 4 G, Q.2WK.
     Route: 058
     Dates: start: 201910

REACTIONS (4)
  - Mood swings [Unknown]
  - Burning sensation [Unknown]
  - Skin reaction [Unknown]
  - Headache [Unknown]
